FAERS Safety Report 26141782 (Version 1)
Quarter: 2025Q4

REPORT INFORMATION
  Report Type: Spontaneous
  Country: US (occurrence: US)
  Receive Date: 20251210
  Receipt Date: 20251210
  Transmission Date: 20260117
  Serious: Yes (Hospitalization)
  Sender: B. BRAUN MEDICAL INC.
  Company Number: US-B. Braun Medical Inc.-US-BBM-202504724

PATIENT
  Age: 65 Year
  Sex: Male

DRUGS (2)
  1. CEFAZOLIN [Suspect]
     Active Substance: CEFAZOLIN
     Indication: Staphylococcal bacteraemia
  2. WARFARIN [Interacting]
     Active Substance: WARFARIN

REACTIONS (2)
  - Henoch-Schonlein purpura [Recovered/Resolved]
  - Drug interaction [Recovered/Resolved]
